FAERS Safety Report 10182341 (Version 3)
Quarter: 2014Q2

REPORT INFORMATION
  Report Type: Report from Study
  Country: PE (occurrence: PE)
  Receive Date: 20140520
  Receipt Date: 20140619
  Transmission Date: 20141212
  Serious: No
  Sender: FDA-Public Use
  Company Number: PE-ROCHE-1362115

PATIENT
  Age: 60 Year
  Sex: Female

DRUGS (2)
  1. PEGASYS [Suspect]
     Indication: HEPATITIS C
     Route: 058
     Dates: start: 20140113, end: 20140415
  2. RIBAVIRINA [Suspect]
     Indication: HEPATITIS C
     Route: 048
     Dates: start: 20140113

REACTIONS (6)
  - Immunodeficiency [Recovering/Resolving]
  - Leukopenia [Recovering/Resolving]
  - Haemoglobin decreased [Unknown]
  - Anaemia [Recovering/Resolving]
  - Hepatic dysplasia [Recovering/Resolving]
  - Gait disturbance [Unknown]
